FAERS Safety Report 4618966-3 (Version None)
Quarter: 2005Q1

REPORT INFORMATION
  Report Type: 
  Country: None (occurrence: None)
  Receive Date: 20050325
  Receipt Date: 20050315
  Transmission Date: 20050727
  Serious: Yes (Hospitalization)
  Sender: FDA-Public Use
  Company Number: DE-JNJFOC-20040201243

PATIENT
  Sex: Female
  Weight: 61 kg

DRUGS (5)
  1. REMICADE [Suspect]
     Indication: CROHN'S DISEASE
     Route: 050
  2. MESALAMINE [Concomitant]
  3. AZATHIOPRINE [Concomitant]
     Route: 065
  4. PANTOPRAZOLE [Concomitant]
     Indication: GASTRITIS
     Route: 065
  5. CALCIUM GLUCONATE [Concomitant]
     Route: 065

REACTIONS (1)
  - CROHN'S DISEASE [None]
